FAERS Safety Report 15722367 (Version 1)
Quarter: 2018Q4

REPORT INFORMATION
  Report Type: Spontaneous
  Country: BE (occurrence: BE)
  Receive Date: 20181214
  Receipt Date: 20181214
  Transmission Date: 20190205
  Serious: Yes (Hospitalization, Disabling, Other)
  Sender: FDA-Public Use
  Company Number: BE-009507513-1812BEL002727

PATIENT
  Age: 91 Year
  Sex: Female

DRUGS (3)
  1. ASAFLOW [Concomitant]
     Active Substance: ASPIRIN
     Indication: HYPERTENSION
     Dosage: UNK
  2. REMERGON [Suspect]
     Active Substance: MIRTAZAPINE
     Dosage: UNK
     Route: 048
     Dates: start: 201811, end: 201811
  3. REMERGON [Suspect]
     Active Substance: MIRTAZAPINE
     Indication: APPETITE DISORDER
     Dosage: UNK
     Route: 048
     Dates: start: 201808, end: 20181115

REACTIONS (10)
  - Coma [Not Recovered/Not Resolved]
  - Lethargy [Unknown]
  - Product use in unapproved indication [Unknown]
  - Cerebrovascular accident [Unknown]
  - Dizziness [Unknown]
  - Tremor [Unknown]
  - Accidental exposure to product [Unknown]
  - Speech disorder [Unknown]
  - Neck pain [Unknown]
  - Peripheral swelling [Unknown]

NARRATIVE: CASE EVENT DATE: 2018
